FAERS Safety Report 12863891 (Version 2)
Quarter: 2016Q4

REPORT INFORMATION
  Report Type: Spontaneous
  Country: US (occurrence: US)
  Receive Date: 20161019
  Receipt Date: 20161109
  Transmission Date: 20170207
  Serious: Yes (Other)
  Sender: FDA-Public Use
  Company Number: US-GILEAD-2016-0238979

PATIENT
  Age: 27 Year
  Sex: Female
  Weight: 80.73 kg

DRUGS (6)
  1. TRAZODONE [Concomitant]
     Active Substance: TRAZODONE HYDROCHLORIDE
     Indication: INSOMNIA
     Dosage: 200 MG, QHS
     Route: 048
     Dates: start: 20160420
  2. SOVALDI [Suspect]
     Active Substance: SOFOSBUVIR
     Indication: HEPATITIS C
     Dosage: 400 MG, QD
     Route: 048
     Dates: start: 20160811, end: 20160827
  3. ZOLOFT [Concomitant]
     Active Substance: SERTRALINE HYDROCHLORIDE
     Indication: DEPRESSION
     Dosage: 150 MG, QD
     Route: 048
     Dates: start: 20160626
  4. BUSPAR [Concomitant]
     Active Substance: BUSPIRONE HYDROCHLORIDE
     Indication: MENTAL DISORDER
     Dosage: 30 MG, BID
     Route: 048
     Dates: start: 20160426
  5. DAKLINZA [Suspect]
     Active Substance: DACLATASVIR
     Indication: HEPATITIS C
     Dosage: 60 MG, QD
     Route: 048
     Dates: start: 20160811, end: 20160827
  6. FENOFIBRATE. [Concomitant]
     Active Substance: FENOFIBRATE
     Dosage: 67 MG, QD
     Route: 048
     Dates: start: 20131105

REACTIONS (5)
  - Rash [Unknown]
  - Pruritus [Recovered/Resolved]
  - Pain [Unknown]
  - Pain in extremity [Recovered/Resolved]
  - Blister [Recovered/Resolved]

NARRATIVE: CASE EVENT DATE: 20160826
